FAERS Safety Report 19747191 (Version 1)
Quarter: 2021Q3

REPORT INFORMATION
  Report Type: Spontaneous
  Country: GB (occurrence: GB)
  Receive Date: 20210826
  Receipt Date: 20210826
  Transmission Date: 20211014
  Serious: Yes (Other)
  Sender: FDA-Public Use
  Company Number: GB-DRREDDYS-SPO/UKI/21/0139281

PATIENT
  Age: 50 Year
  Sex: Female

DRUGS (1)
  1. SUMATRIPTAN. [Suspect]
     Active Substance: SUMATRIPTAN
     Indication: ILL-DEFINED DISORDER
     Route: 048
     Dates: start: 20170531, end: 20170531

REACTIONS (2)
  - Migraine [Recovered/Resolved]
  - Medication error [Unknown]
